FAERS Safety Report 12236167 (Version 3)
Quarter: 2016Q4

REPORT INFORMATION
  Report Type: Spontaneous
  Country: US (occurrence: US)
  Receive Date: 20160404
  Receipt Date: 20161205
  Transmission Date: 20170207
  Serious: No
  Sender: FDA-Public Use
  Company Number: US-ASTRAZENECA-2016SE19118

PATIENT
  Sex: Female

DRUGS (1)
  1. TUDORZA PRESSAIR [Suspect]
     Active Substance: ACLIDINIUM BROMIDE
     Dosage: 400 MCG ONE PUFF TWICE A DAY
     Route: 055

REACTIONS (7)
  - Dizziness [Unknown]
  - Migraine [Unknown]
  - Body height decreased [Unknown]
  - Product quality issue [Unknown]
  - Dyspnoea [Unknown]
  - Vision blurred [Unknown]
  - Visual acuity reduced [Unknown]
